FAERS Safety Report 13704529 (Version 1)
Quarter: 2017Q2

REPORT INFORMATION
  Report Type: Other
  Country: DE (occurrence: DE)
  Receive Date: 20170630
  Receipt Date: 20170630
  Transmission Date: 20170830
  Serious: Yes (Death)
  Sender: FDA-Public Use
  Company Number: DE-ORCHID HEALTHCARE-2022766

PATIENT
  Age: 72 Year
  Sex: Male

DRUGS (2)
  1. CIPROFLOXACIN. [Suspect]
     Active Substance: CIPROFLOXACIN
     Route: 065
  2. CEFUROXIME AXETIL. [Suspect]
     Active Substance: CEFUROXIME AXETIL
     Indication: WHIPPLE^S DISEASE
     Route: 065

REACTIONS (2)
  - Whipple^s disease [Fatal]
  - Immune reconstitution inflammatory syndrome [Fatal]
